FAERS Safety Report 11247894 (Version 2)
Quarter: 2015Q2

REPORT INFORMATION
  Report Type: Spontaneous
  Country: US (occurrence: None)
  Receive Date: 20150617
  Receipt Date: 20150617
  Transmission Date: 20150821
  Serious: No
  Sender: FDA-Public Use
  Company Number: 2014TASUS000487

PATIENT
  Age: 48 Year
  Sex: Male
  Weight: 83.9 kg

DRUGS (2)
  1. HETLIOZ [Suspect]
     Active Substance: TASIMELTEON
     Indication: CIRCADIAN RHYTHM SLEEP DISORDER
     Dosage: 20 MG, QD (AT 9PM), ORAL
     Route: 048
     Dates: start: 20140818
  2. DIPHENHYDRAMINE HCL (DIPHENHYDRAMINE HYDROCHLORIDE) [Concomitant]

REACTIONS (6)
  - Fatigue [None]
  - Drug ineffective [None]
  - Poor quality sleep [None]
  - Initial insomnia [None]
  - Headache [None]
  - Middle insomnia [None]

NARRATIVE: CASE EVENT DATE: 20140818
